FAERS Safety Report 17883525 (Version 2)
Quarter: 2020Q2

REPORT INFORMATION
  Report Type: Report from Study
  Country: BR (occurrence: BR)
  Receive Date: 20200611
  Receipt Date: 20200616
  Transmission Date: 20200714
  Serious: Yes (Other)
  Sender: FDA-Public Use
  Company Number: BR-ROCHE-2613898

PATIENT
  Sex: Female

DRUGS (3)
  1. PERJETA [Suspect]
     Active Substance: PERTUZUMAB
     Indication: HER2 POSITIVE BREAST CANCER
     Route: 065
  2. HERCEPTIN [Suspect]
     Active Substance: TRASTUZUMAB
     Indication: HER2 POSITIVE BREAST CANCER
     Route: 065
  3. TAMOXIFEN [Concomitant]
     Active Substance: TAMOXIFEN

REACTIONS (18)
  - Ageusia [Unknown]
  - Malaise [Unknown]
  - Lymphoedema [Unknown]
  - Pain [Unknown]
  - Vein disorder [Unknown]
  - Disturbance in attention [Unknown]
  - Insomnia [Unknown]
  - Drug ineffective [Unknown]
  - Device related infection [Unknown]
  - Sleep deficit [Unknown]
  - Premature menopause [Unknown]
  - Swelling [Unknown]
  - Alopecia [Unknown]
  - Irritability [Unknown]
  - Memory impairment [Unknown]
  - Self esteem decreased [Unknown]
  - Loss of libido [Unknown]
  - Aggression [Unknown]
